FAERS Safety Report 9119670 (Version 3)
Quarter: 2013Q3

REPORT INFORMATION
  Report Type: Report from Study
  Country: AU (occurrence: AU)
  Receive Date: 20130226
  Receipt Date: 20130814
  Transmission Date: 20140515
  Serious: Yes (Death, Other)
  Sender: FDA-Public Use
  Company Number: PHHY2013AU018508

PATIENT
  Age: 27 Year
  Sex: Male
  Weight: 111 kg

DRUGS (7)
  1. CLOZARIL [Suspect]
     Indication: SCHIZOPHRENIA
     Dosage: 350 MG, UNK
     Route: 048
     Dates: start: 20070925
  2. CLOZARIL [Suspect]
     Dosage: 350 MG, UNK
     Route: 048
     Dates: start: 20130123
  3. MIRTAZAPINE [Concomitant]
     Indication: MAJOR DEPRESSION
     Dosage: 45 MG, UNK
     Route: 048
  4. DIAZEPAM [Concomitant]
     Indication: GENERALISED ANXIETY DISORDER
     Dosage: 5 MG, UNK
     Route: 048
  5. DIAZEPAM [Concomitant]
     Dosage: 7.5 MG, UNK
  6. DIAZEPAM [Concomitant]
     Dosage: 2.5 MG, UNK
  7. QUETIAPINE XR [Concomitant]
     Dosage: 300 MG, DAILY
     Route: 048

REACTIONS (5)
  - Death [Fatal]
  - Electrocardiogram ST-T change [Unknown]
  - Sinus tachycardia [Unknown]
  - White blood cell count increased [Recovered/Resolved]
  - Neutrophil count increased [Recovered/Resolved]
